FAERS Safety Report 7388336-6 (Version None)
Quarter: 2011Q2

REPORT INFORMATION
  Report Type: 
  Country: None (occurrence: None)
  Receive Date: 20110401
  Receipt Date: 20110327
  Transmission Date: 20111010
  Serious: No
  Sender: FDA-Public Use
  Company Number: US-TEVA-273832USA

PATIENT
  Sex: Female
  Weight: 61.29 kg

DRUGS (2)
  1. PLAN B ONE-STEP [Suspect]
     Indication: POST COITAL CONTRACEPTION
     Route: 048
     Dates: start: 20110321, end: 20110321
  2. ZYRTEC [Concomitant]
     Indication: HYPERSENSITIVITY
     Dates: start: 20110318

REACTIONS (1)
  - MENSTRUATION IRREGULAR [None]
